FAERS Safety Report 8539846-7 (Version None)
Quarter: 2012Q3

REPORT INFORMATION
  Report Type: 
  Country: None (occurrence: None)
  Receive Date: 20120726
  Receipt Date: 20120716
  Transmission Date: 20120928
  Serious: Yes (Hospitalization)
  Sender: FDA-Public Use
  Company Number: FR-FRI-1000037268

PATIENT
  Sex: Male

DRUGS (13)
  1. NEBIVOLOL [Suspect]
     Route: 048
     Dates: start: 20111124, end: 20120413
  2. LASIX [Suspect]
     Dosage: 40 MG
     Route: 048
     Dates: start: 20111124, end: 20120319
  3. IRBESARTAN AND HYDROCHLOROTHIAZIDE [Concomitant]
     Dates: end: 20111219
  4. RAMIPRIL [Concomitant]
  5. ASPIRIN [Concomitant]
  6. GLICLAZIDE [Concomitant]
  7. REPAGLINIDE [Concomitant]
     Dates: end: 20120229
  8. ATORVASTATIN [Concomitant]
  9. ATENOLOL [Concomitant]
     Dates: end: 20111219
  10. LANSOPRAZOLE [Concomitant]
  11. TAMSULOSIN HCL [Concomitant]
  12. PLAVIX [Suspect]
     Route: 048
     Dates: start: 20111124, end: 20120412
  13. LERCANIDIPINE [Concomitant]
     Dates: end: 20111219

REACTIONS (2)
  - PRURITUS [None]
  - RASH PAPULAR [None]
